FAERS Safety Report 11996220 (Version 5)
Quarter: 2016Q3

REPORT INFORMATION
  Report Type: Spontaneous
  Country: US (occurrence: US)
  Receive Date: 20160203
  Receipt Date: 20160809
  Transmission Date: 20161109
  Serious: Yes (Hospitalization, Other)
  Sender: FDA-Public Use
  Company Number: US-PFIZER INC-2015431226

PATIENT
  Age: 86 Year
  Sex: Female
  Weight: 36 kg

DRUGS (8)
  1. SUTENT [Suspect]
     Active Substance: SUNITINIB MALATE
     Dosage: 20 MG, 1X/DAY
     Dates: start: 20160417
  2. ZOLOFT [Concomitant]
     Active Substance: SERTRALINE HYDROCHLORIDE
     Dosage: UNK
     Dates: start: 1997
  3. SUTENT [Suspect]
     Active Substance: SUNITINIB MALATE
     Dosage: 25 MG, 1X/DAY
  4. DOCUSATE SODIUM. [Concomitant]
     Active Substance: DOCUSATE SODIUM
     Dosage: UNK
     Dates: start: 2006
  5. TYLENOL [Concomitant]
     Active Substance: ACETAMINOPHEN
     Dosage: UNK
     Dates: start: 2006
  6. MUCINEX [Concomitant]
     Active Substance: GUAIFENESIN
     Dosage: UNK
     Dates: start: 2006
  7. SUTENT [Suspect]
     Active Substance: SUNITINIB MALATE
     Indication: SMALL CELL LUNG CANCER
     Dosage: 25 MG, DAILY
     Dates: start: 20160101
  8. GABAPENTIN. [Concomitant]
     Active Substance: GABAPENTIN
     Indication: ESSENTIAL TREMOR
     Dosage: 100 MG, UNK
     Dates: start: 2016, end: 201607

REACTIONS (5)
  - Skull fracture [Recovered/Resolved]
  - Confusional state [Recovered/Resolved]
  - Product use issue [Not Recovered/Not Resolved]
  - Fall [Not Recovered/Not Resolved]
  - Cerebral haemorrhage [Recovered/Resolved]

NARRATIVE: CASE EVENT DATE: 20160101
